FAERS Safety Report 17875466 (Version 1)
Quarter: 2020Q2

REPORT INFORMATION
  Report Type: Report from Study
  Country: CA (occurrence: CA)
  Receive Date: 20200609
  Receipt Date: 20200609
  Transmission Date: 20200714
  Serious: Yes (Hospitalization, Other)
  Sender: FDA-Public Use
  Company Number: CA-ROCHE-2613321

PATIENT
  Sex: Male

DRUGS (27)
  1. ROSUVASTATIN. [Concomitant]
     Active Substance: ROSUVASTATIN
     Indication: BLOOD CHOLESTEROL
     Route: 065
     Dates: start: 20190523
  2. SPIRIVA [Concomitant]
     Active Substance: TIOTROPIUM BROMIDE MONOHYDRATE
     Route: 065
     Dates: start: 20191009
  3. ALTEPLASE. [Concomitant]
     Active Substance: ALTEPLASE
     Route: 065
     Dates: start: 20190718
  4. CALCIUM CARBONATE. [Concomitant]
     Active Substance: CALCIUM CARBONATE
     Route: 048
     Dates: start: 20200403
  5. LACTULOSE. [Concomitant]
     Active Substance: LACTULOSE
     Route: 048
     Dates: start: 20200319
  6. TYLENOL [Concomitant]
     Active Substance: ACETAMINOPHEN
     Route: 048
     Dates: start: 20191004
  7. EPOETIN ALFA [Concomitant]
     Active Substance: ERYTHROPOIETIN
     Dosage: 1000 IU
     Route: 058
  8. MOXIFLOXACIN. [Concomitant]
     Active Substance: MOXIFLOXACIN
     Indication: CHRONIC OBSTRUCTIVE PULMONARY DISEASE
     Route: 048
     Dates: start: 20200123
  9. SALBUTAMOL [Concomitant]
     Active Substance: ALBUTEROL
  10. RITUXAN [Suspect]
     Active Substance: RITUXIMAB
     Indication: ANTI-NEUTROPHIL CYTOPLASMIC ANTIBODY POSITIVE VASCULITIS
     Dosage: DRUG DOSE FIRST ADMINISTERED IS UNKNOWN
     Route: 042
     Dates: start: 20161213, end: 20190521
  11. LOPERAMIDE [Concomitant]
     Active Substance: LOPERAMIDE
     Route: 048
     Dates: start: 20170919
  12. SODIUM CITRATE. [Concomitant]
     Active Substance: SODIUM CITRATE
  13. SOLU-MEDROL [Concomitant]
     Active Substance: METHYLPREDNISOLONE SODIUM SUCCINATE
     Route: 042
     Dates: start: 20191004
  14. ALBUMIN [Concomitant]
     Active Substance: ALBUMIN HUMAN
     Indication: HYPOTENSION
     Route: 065
     Dates: start: 20170113
  15. BISOPROLOL FUMARATE. [Concomitant]
     Active Substance: BISOPROLOL FUMARATE
     Route: 048
     Dates: start: 20181009
  16. IPRATROPIUM BROMIDE. [Concomitant]
     Active Substance: IPRATROPIUM BROMIDE
     Route: 065
     Dates: start: 20190523
  17. SODIUM FERRIC GLUCONATE COMPLEX. [Concomitant]
     Active Substance: SODIUM FERRIC GLUCONATE COMPLEX
     Route: 042
     Dates: start: 20190527
  18. DOCUSATE SODIUM. [Concomitant]
     Active Substance: DOCUSATE SODIUM
     Route: 048
     Dates: start: 20200319
  19. ENOXAPARIN SODIUM. [Concomitant]
     Active Substance: ENOXAPARIN SODIUM
     Route: 042
     Dates: start: 20200429
  20. RITUXAN [Suspect]
     Active Substance: RITUXIMAB
     Dosage: ONGOING
     Route: 042
     Dates: start: 20191004
  21. ACETAMINOPHEN. [Concomitant]
     Active Substance: ACETAMINOPHEN
     Route: 048
     Dates: start: 20150423
  22. ACETYLSALICYLIC ACID [Concomitant]
     Active Substance: ASPIRIN
     Route: 048
     Dates: start: 20191219
  23. BENADRYL [Concomitant]
     Active Substance: DIPHENHYDRAMINE HYDROCHLORIDE
     Route: 048
  24. HEPARIN SODIUM. [Concomitant]
     Active Substance: HEPARIN SODIUM
     Dosage: 3500 IU
     Route: 065
     Dates: start: 20190829
  25. MIDODRINE HCL [Concomitant]
     Active Substance: MIDODRINE HYDROCHLORIDE
     Route: 048
     Dates: start: 20191016
  26. PREDNISONE. [Concomitant]
     Active Substance: PREDNISONE
     Route: 048
     Dates: start: 20190910
  27. PSYLLIUM HYDROPHILIC MUCILLOID [Concomitant]
     Active Substance: PSYLLIUM HUSK
     Route: 048
     Dates: start: 20170919

REACTIONS (15)
  - Pulmonary oedema [Recovering/Resolving]
  - Oxygen saturation decreased [Unknown]
  - Pneumonia [Unknown]
  - Blood creatinine increased [Unknown]
  - Systemic lupus erythematosus [Unknown]
  - Pyrexia [Unknown]
  - Hypertension [Unknown]
  - Accessory muscle [Unknown]
  - Rales [Unknown]
  - Dyspnoea [Unknown]
  - Chronic obstructive pulmonary disease [Unknown]
  - Pleural effusion [Unknown]
  - Heart rate increased [Unknown]
  - Haemoptysis [Unknown]
  - Cough [Unknown]

NARRATIVE: CASE EVENT DATE: 2017
